FAERS Safety Report 13274580 (Version 2)
Quarter: 2017Q2

REPORT INFORMATION
  Report Type: Spontaneous
  Country: JP (occurrence: JP)
  Receive Date: 20170227
  Receipt Date: 20170407
  Transmission Date: 20170830
  Serious: Yes (Other)
  Sender: FDA-Public Use
  Company Number: JP-PFIZER INC-2017009512

PATIENT
  Age: 75 Year
  Sex: Male

DRUGS (4)
  1. SELBEX [Concomitant]
     Active Substance: TEPRENONE
     Dosage: 2 DF, DAILY
     Route: 048
     Dates: start: 20121026
  2. FOLIAMIN [Concomitant]
     Active Substance: FOLIC ACID
     Dosage: 1 DF, DAILY
     Route: 048
     Dates: start: 20121026, end: 20170216
  3. ROXONIN [Concomitant]
     Dosage: 2 DF, DAILY
     Route: 048
     Dates: start: 20121026
  4. RHEUMATREX [Suspect]
     Active Substance: METHOTREXATE SODIUM
     Dosage: 4 DF, WEEKLY (2 CAPSULES/DAY)
     Route: 048
     Dates: start: 20121026, end: 20170216

REACTIONS (4)
  - White blood cell count increased [Not Recovered/Not Resolved]
  - Platelet count increased [Not Recovered/Not Resolved]
  - Anisocytosis [Recovering/Resolving]
  - C-reactive protein increased [Unknown]

NARRATIVE: CASE EVENT DATE: 20160805
